FAERS Safety Report 7778426-8 (Version None)
Quarter: 2011Q3

REPORT INFORMATION
  Report Type: 
  Country: None (occurrence: None)
  Receive Date: 20110926
  Receipt Date: 20110919
  Transmission Date: 20111222
  Serious: Yes (Hospitalization)
  Sender: FDA-Public Use
  Company Number: US-GLAXOSMITHKLINE-A0945157A

PATIENT
  Age: 33 Year
  Sex: Female

DRUGS (3)
  1. STEROID [Concomitant]
     Indication: PAIN
  2. IMITREX [Suspect]
     Indication: MIGRAINE
     Route: 058
     Dates: start: 20000501
  3. NO CONCURRENT MEDICATION [Concomitant]

REACTIONS (21)
  - PARAESTHESIA [None]
  - VOMITING [None]
  - INJURY [None]
  - VISUAL ACUITY REDUCED [None]
  - ASTHENIA [None]
  - URINARY TRACT INFECTION [None]
  - ABASIA [None]
  - CONVERSION DISORDER [None]
  - CRYING [None]
  - ANGER [None]
  - PARALYSIS [None]
  - SENSATION OF HEAVINESS [None]
  - MOTOR DYSFUNCTION [None]
  - LOSS OF CONSCIOUSNESS [None]
  - BURNING SENSATION [None]
  - DIARRHOEA [None]
  - CORRECTIVE LENS USER [None]
  - DIZZINESS [None]
  - ANHEDONIA [None]
  - APPARENT DEATH [None]
  - FLUSHING [None]
